FAERS Safety Report 16477900 (Version 1)
Quarter: 2019Q2

REPORT INFORMATION
  Report Type: Spontaneous
  Country: HR (occurrence: HR)
  Receive Date: 20190626
  Receipt Date: 20190626
  Transmission Date: 20190711
  Serious: Yes (Other)
  Sender: FDA-Public Use
  Company Number: HR-ACCORD-135040

PATIENT
  Age: 15 Year
  Sex: Female
  Weight: 60 kg

DRUGS (4)
  1. XANAX [Suspect]
     Active Substance: ALPRAZOLAM
     Route: 048
     Dates: start: 20190226, end: 20190226
  2. DIAZEPAM. [Suspect]
     Active Substance: DIAZEPAM
     Route: 048
     Dates: start: 20190226, end: 20190226
  3. ARIPIPRAZOLE. [Suspect]
     Active Substance: ARIPIPRAZOLE
     Route: 048
     Dates: start: 20190226, end: 20190226
  4. ESCITALOPRAM [Suspect]
     Active Substance: ESCITALOPRAM OXALATE
     Route: 048
     Dates: start: 20190226, end: 20190226

REACTIONS (2)
  - Intentional overdose [Unknown]
  - Suicide attempt [Unknown]

NARRATIVE: CASE EVENT DATE: 20190226
